FAERS Safety Report 4779467-5 (Version None)
Quarter: 2005Q3

REPORT INFORMATION
  Report Type: 
  Country: None (occurrence: None)
  Receive Date: 20050923
  Receipt Date: 20050907
  Transmission Date: 20060218
  Serious: Yes (Other)
  Sender: FDA-Public Use
  Company Number: DSA_26961_2005

PATIENT
  Sex: Female

DRUGS (1)
  1. CARDIZEM LA [Suspect]
     Dosage: 360 MG Q DAY PO
     Route: 048
     Dates: end: 20050101

REACTIONS (1)
  - PIGMENTATION DISORDER [None]
